FAERS Safety Report 6591424-5 (Version None)
Quarter: 2010Q1

REPORT INFORMATION
  Report Type: 
  Country: None (occurrence: None)
  Receive Date: 20100219
  Receipt Date: 20100209
  Transmission Date: 20100710
  Serious: Yes (Hospitalization)
  Sender: FDA-Public Use
  Company Number: FR-AMGEN-US254283

PATIENT
  Sex: Female

DRUGS (14)
  1. ENBREL [Suspect]
     Indication: PSORIATIC ARTHROPATHY
     Route: 058
     Dates: start: 20070101, end: 20080901
  2. ENBREL [Suspect]
     Dosage: LYOPHILIZED/25 MG 2 TIMES PER WEEK
     Route: 058
     Dates: start: 20020601, end: 20070101
  3. ENBREL [Suspect]
     Route: 058
     Dates: start: 20080901, end: 20100101
  4. PANENZA [Suspect]
     Indication: IMMUNISATION
     Dates: start: 20091124, end: 20091124
  5. CORTISONE [Suspect]
     Dates: start: 20081128, end: 20081128
  6. FLUDEX [Concomitant]
     Indication: HYPERTENSION
     Dosage: UNKNOWN
     Dates: start: 20050101
  7. DILTIAZEM [Concomitant]
     Indication: HYPERTENSION
     Dosage: UNKNOWN
  8. HYPERIUM [Concomitant]
     Indication: HYPERTENSION
     Dosage: UNKNOWN
  9. ATACAND [Concomitant]
     Indication: HYPERTENSION
     Dosage: UNKNOWN
     Dates: start: 20090601
  10. ALDACTONE [Concomitant]
     Indication: HYPERTENSION
     Dosage: UNKNOWN
  11. LANZOR [Concomitant]
     Dosage: UNKNOWN
     Dates: end: 20091201
  12. IDEOS [Concomitant]
     Dosage: UNKNOWN
     Dates: end: 20091201
  13. DAFLON [Concomitant]
     Dosage: UNKNOWN
     Dates: end: 20091201
  14. VOLTAREN [Concomitant]
     Dosage: 75 MG TOTAL DAILY
     Route: 048
     Dates: end: 20091201

REACTIONS (14)
  - ARTHRALGIA [None]
  - ASTHENIA [None]
  - CONDITION AGGRAVATED [None]
  - DRUG EFFECT DELAYED [None]
  - ECCHYMOSIS [None]
  - FALL [None]
  - HYPERTENSION [None]
  - INJECTION SITE ERYTHEMA [None]
  - INJECTION SITE INDURATION [None]
  - INJECTION SITE MASS [None]
  - INJECTION SITE WARMTH [None]
  - PRURITUS GENERALISED [None]
  - PSORIASIS [None]
  - SYNCOPE [None]
